FAERS Safety Report 18916665 (Version 1)
Quarter: 2021Q1

REPORT INFORMATION
  Report Type: Spontaneous
  Country: GB (occurrence: GB)
  Receive Date: 20210219
  Receipt Date: 20210219
  Transmission Date: 20210420
  Serious: Yes (Other)
  Sender: FDA-Public Use
  Company Number: GB-MYLANLABS-2021M1010064

PATIENT
  Age: 60 Year
  Sex: Male
  Weight: 116 kg

DRUGS (18)
  1. TRIMETHOPRIM. [Concomitant]
     Active Substance: TRIMETHOPRIM
     Dosage: TO TREAT URINE ...
     Dates: start: 20201118, end: 20201125
  2. LACIDIPINE [Concomitant]
     Active Substance: LACIDIPINE
     Dosage: 1 DOSAGE FORM, QD
     Dates: start: 20201104
  3. NICORANDIL [Concomitant]
     Active Substance: NICORANDIL
     Dosage: 30 MILLIGRAM, BID
     Dates: start: 20201103
  4. TERBINAFINE. [Concomitant]
     Active Substance: TERBINAFINE
     Indication: FUNGAL INFECTION
     Dosage: 1 DOSAGE FORM, QD
     Dates: start: 20210127, end: 20210210
  5. AMLODIPINE [Suspect]
     Active Substance: AMLODIPINE BESYLATE
     Indication: PRODUCT USED FOR UNKNOWN INDICATION
     Dosage: 10 MILLIGRAM
     Dates: start: 202011
  6. ASPIRIN                            /00002701/ [Concomitant]
     Active Substance: ASPIRIN
     Dosage: 1 DOSAGE FORM, QD
     Dates: start: 20201103
  7. GLYCERYL TRINITRATE [Concomitant]
     Active Substance: NITROGLYCERIN
     Dosage: 1 DOSAGE FORM
     Dates: start: 20201103
  8. CETRABEN EMOLLIENT BATH ADDITIVE [Concomitant]
     Dosage: APPLY TWICE DAILY
     Dates: start: 20210211
  9. PRAVASTATIN. [Concomitant]
     Active Substance: PRAVASTATIN
     Dosage: AT NIGHT
     Dates: start: 20201103
  10. BISOPROLOL [Concomitant]
     Active Substance: BISOPROLOL
     Dosage: 1 DOSAGE FORM, QD
     Dates: start: 20201103
  11. ISOTARD XL [Concomitant]
     Dosage: 1 DOSAGE FORM, BID
     Dates: start: 20201103
  12. LOTRIDERM [Concomitant]
     Active Substance: BETAMETHASONE DIPROPIONATE\CLOTRIMAZOLE
     Dosage: APPLY
     Dates: start: 20210111, end: 20210125
  13. TIMODINE                           /01524101/ [Concomitant]
     Dosage: APPLY
     Dates: start: 20201118, end: 20201202
  14. RAMIPRIL. [Concomitant]
     Active Substance: RAMIPRIL
     Dosage: 1 DOSAGE FORM, QD
     Dates: start: 20201103
  15. CETIRIZINE [Concomitant]
     Active Substance: CETIRIZINE HYDROCHLORIDE
     Dosage: 1 DOSAGE FORM, QD
     Dates: start: 20201103
  16. LANSOPRAZOLE. [Concomitant]
     Active Substance: LANSOPRAZOLE
     Dosage: EACH MORNING
     Dates: start: 20201103
  17. RANOLAZINE. [Concomitant]
     Active Substance: RANOLAZINE
     Indication: FUNGAL INFECTION
     Dosage: 1 DOSAGE FORM, BID
     Dates: start: 20201103
  18. FINASTERIDE. [Concomitant]
     Active Substance: FINASTERIDE
     Dosage: 1 DOSAGE FORM, QD
     Dates: start: 20201113

REACTIONS (1)
  - Eczema [Unknown]
